FAERS Safety Report 7805524-2 (Version None)
Quarter: 2011Q4

REPORT INFORMATION
  Report Type: 
  Country: None (occurrence: None)
  Receive Date: 20111010
  Receipt Date: 20111003
  Transmission Date: 20120403
  Serious: Yes (Hospitalization, Other)
  Sender: FDA-Public Use
  Company Number: US-AMGEN-USASP2011051306

PATIENT
  Age: 70 Year
  Sex: Female

DRUGS (1)
  1. ENBREL [Suspect]
     Indication: RHEUMATOID ARTHRITIS
     Dosage: 50 MG, QWK
     Dates: start: 20080201

REACTIONS (6)
  - VULVOVAGINAL HUMAN PAPILLOMA VIRUS INFECTION [None]
  - MITRAL VALVE REPLACEMENT [None]
  - BITE [None]
  - VULVOVAGINAL PRURITUS [None]
  - ATRIAL FIBRILLATION [None]
  - SKIN CANCER [None]
